FAERS Safety Report 5804760-4 (Version None)
Quarter: 2008Q3

REPORT INFORMATION
  Report Type: 
  Country: None (occurrence: None)
  Receive Date: 20080709
  Receipt Date: 20080630
  Transmission Date: 20090109
  Serious: Yes (Death, Other)
  Sender: FDA-Public Use
  Company Number: ZA-ABBOTT-08P-143-0451921-00

PATIENT
  Sex: Male

DRUGS (2)
  1. HUMIRA [Suspect]
     Indication: ANKYLOSING SPONDYLITIS
     Route: 058
     Dates: start: 20060412, end: 20070418
  2. HUMIRA [Suspect]
     Indication: CROHN'S DISEASE

REACTIONS (9)
  - ASPERGILLOMA [None]
  - COUGH [None]
  - FIBROSIS [None]
  - HAEMOPTYSIS [None]
  - HAEMORRHAGE [None]
  - LOWER RESPIRATORY TRACT INFECTION [None]
  - PATHOGEN RESISTANCE [None]
  - PULMONARY MASS [None]
  - SEPSIS [None]
